FAERS Safety Report 7853069-6 (Version None)
Quarter: 2011Q3

REPORT INFORMATION
  Report Type: 
  Country: None (occurrence: None)
  Receive Date: 20110915
  Receipt Date: 20110523
  Transmission Date: 20111222
  Serious: Yes (Hospitalization)
  Sender: FDA-Public Use
  Company Number: 2011028662

PATIENT
  Sex: Female
  Weight: 85 kg

DRUGS (14)
  1. METFORMIN HCL [Concomitant]
  2. PRIVIGEN [Suspect]
  3. PRIVIGEN [Suspect]
  4. PRIVIGEN [Suspect]
  5. VITAMIN B (VITAMIN B) [Concomitant]
  6. LISINOPRIL [Concomitant]
  7. PRIVIGEN [Suspect]
     Indication: CHRONIC INFLAMMATORY DEMYELINATING POLYRADICULONEUROPATHY
     Dosage: SEE IMAGE
     Route: 042
     Dates: start: 20110516, end: 20110520
  8. PRIVIGEN [Suspect]
  9. GLIPIZIDE [Concomitant]
  10. CRESTOR [Concomitant]
  11. PRIVIGEN [Suspect]
  12. ASPIRIN [Concomitant]
  13. GLYBURIDE [Concomitant]
  14. PRIVIGEN [Suspect]

REACTIONS (3)
  - HAEMOLYTIC ANAEMIA [None]
  - FATIGUE [None]
  - JAUNDICE [None]
